FAERS Safety Report 9156693 (Version 1)
Quarter: 2013Q1

REPORT INFORMATION
  Report Type: Spontaneous
  Country: US (occurrence: None)
  Receive Date: 20130308
  Receipt Date: 20130308
  Transmission Date: 20140127
  Serious: Yes (Hospitalization)
  Sender: FDA-Public Use
  Company Number: None

PATIENT
  Sex: Female
  Weight: 107.9 kg

DRUGS (1)
  1. TAMOXIFEN [Suspect]
     Route: 048
     Dates: start: 20080428

REACTIONS (3)
  - Vaginal haemorrhage [None]
  - Endometrial hyperplasia [None]
  - Haemorrhagic anaemia [None]
